FAERS Safety Report 5171537-5 (Version None)
Quarter: 2006Q4

REPORT INFORMATION
  Report Type: 
  Country: None (occurrence: None)
  Receive Date: 20061213
  Receipt Date: 20060822
  Transmission Date: 20070319
  Serious: Yes (Hospitalization)
  Sender: FDA-Public Use
  Company Number: US-AMGEN-US190968

PATIENT
  Sex: Female

DRUGS (2)
  1. ENBREL [Suspect]
     Indication: RHEUMATOID ARTHRITIS
     Route: 058
     Dates: start: 20050301
  2. METHOTREXATE [Concomitant]
     Dates: start: 20060301

REACTIONS (3)
  - BLISTER [None]
  - CELLULITIS [None]
  - SKIN INFECTION [None]
